FAERS Safety Report 7576362-3 (Version None)
Quarter: 2011Q2

REPORT INFORMATION
  Report Type: 
  Country: None (occurrence: None)
  Receive Date: 20110628
  Receipt Date: 20110531
  Transmission Date: 20111010
  Serious: Yes (Hospitalization)
  Sender: FDA-Public Use
  Company Number: US-BAYER-201017134NA

PATIENT
  Age: 17 Year
  Sex: Female
  Weight: 54.422 kg

DRUGS (4)
  1. YAZ [Suspect]
     Indication: MENSTRUATION IRREGULAR
  2. PRILOSEC [Concomitant]
     Indication: GASTROOESOPHAGEAL REFLUX DISEASE
     Dosage: 20 MG, QD
  3. FERROUS SULFATE TAB [Concomitant]
     Dosage: 325 MG, BID
     Route: 048
  4. YAZ [Suspect]
     Indication: ACNE
     Dosage: 3 PILLS IN ONE DAY AND MISS MULTIPLE DAYS
     Route: 048
     Dates: start: 20071001, end: 20080801

REACTIONS (3)
  - CHEST PAIN [None]
  - ANXIETY [None]
  - PULMONARY EMBOLISM [None]
